FAERS Safety Report 7619678-4 (Version None)
Quarter: 2011Q3

REPORT INFORMATION
  Report Type: 
  Country: None (occurrence: None)
  Receive Date: 20110719
  Receipt Date: 20110711
  Transmission Date: 20111222
  Serious: Yes (Life-Threatening, Hospitalization, Disabling, Other)
  Sender: FDA-Public Use
  Company Number: US-BAYER-201031685NA

PATIENT
  Age: 19 Year
  Sex: Female
  Weight: 62.132 kg

DRUGS (3)
  1. YAZ [Suspect]
     Dosage: UNK
     Route: 048
     Dates: start: 20060101, end: 20060101
  2. VIRAL VACCINES [Concomitant]
  3. YAZ [Suspect]
     Dosage: UNK
     Dates: start: 20080101, end: 20090101

REACTIONS (4)
  - ISCHAEMIC STROKE [None]
  - CEREBROVASCULAR ACCIDENT [None]
  - NERVOUS SYSTEM DISORDER [None]
  - GENERAL PHYSICAL HEALTH DETERIORATION [None]
